FAERS Safety Report 5800474-5 (Version None)
Quarter: 2008Q3

REPORT INFORMATION
  Report Type: 
  Country: None (occurrence: None)
  Receive Date: 20080703
  Receipt Date: 20080626
  Transmission Date: 20090109
  Serious: Yes (Hospitalization)
  Sender: FDA-Public Use
  Company Number: A0734983A

PATIENT
  Age: 81 Year
  Sex: Female

DRUGS (2)
  1. LOVAZA [Suspect]
     Route: 048
     Dates: start: 20080501, end: 20080617
  2. BLOOD PRESSURE MEDICATION [Concomitant]

REACTIONS (3)
  - ABDOMINAL PAIN [None]
  - ENERGY INCREASED [None]
  - PANCREATIC CARCINOMA [None]
